FAERS Safety Report 25290319 (Version 1)
Quarter: 2025Q2

REPORT INFORMATION
  Report Type: Spontaneous
  Country: US (occurrence: US)
  Receive Date: 20250510
  Receipt Date: 20250510
  Transmission Date: 20250717
  Serious: Yes (Hospitalization, Other)
  Sender: AMGEN
  Company Number: US-AMGEN-USASP2025088533

PATIENT
  Age: 53 Year
  Sex: Female

DRUGS (1)
  1. PREDNISONE [Suspect]
     Active Substance: PREDNISONE
     Indication: Sarcoidosis
     Dosage: 40 MILLIGRAM, QD
     Route: 065

REACTIONS (3)
  - Hyperglycaemia [Unknown]
  - Pneumoconiosis [Unknown]
  - Off label use [Unknown]
